FAERS Safety Report 18941771 (Version 7)
Quarter: 2022Q1

REPORT INFORMATION
  Report Type: Report from Study
  Country: CA (occurrence: CA)
  Receive Date: 20210225
  Receipt Date: 20220312
  Transmission Date: 20220423
  Serious: Yes (Hospitalization, Other)
  Sender: FDA-Public Use
  Company Number: CA-BRISTOL-MYERS SQUIBB COMPANY-BMS-2021-015761

PATIENT
  Age: 45 Year
  Sex: Female
  Weight: 104 kg

DRUGS (5)
  1. ABATACEPT [Suspect]
     Active Substance: ABATACEPT
     Indication: Rheumatoid arthritis
     Dosage: 1000 MILLIGRAM, Q4WK
     Route: 042
     Dates: start: 20170110
  2. SULFUR [Concomitant]
     Active Substance: SULFUR
     Indication: Product used for unknown indication
     Dosage: UNK
     Route: 065
  3. UNSPECIFIED INGREDIENT [Concomitant]
     Active Substance: UNSPECIFIED INGREDIENT
     Indication: Product used for unknown indication
     Dosage: UNK
     Route: 048
  4. METHOTREXATE SODIUM [Concomitant]
     Active Substance: METHOTREXATE SODIUM
     Indication: Product used for unknown indication
     Dosage: UNK
     Route: 065
     Dates: start: 201502
  5. ARAVA [Concomitant]
     Active Substance: LEFLUNOMIDE
     Indication: Product used for unknown indication
     Dosage: UNK
     Route: 065
     Dates: start: 201502

REACTIONS (12)
  - Rheumatoid arthritis [Recovered/Resolved]
  - Rheumatoid lung [Recovered/Resolved]
  - Cellulitis [Recovered/Resolved]
  - Wound infection [Recovered/Resolved]
  - Diarrhoea [Unknown]
  - Conjunctivitis [Recovered/Resolved]
  - Infected bite [Recovered/Resolved]
  - Heart rate decreased [Unknown]
  - Blood pressure systolic increased [Recovered/Resolved]
  - Prescribed overdose [Unknown]
  - Inappropriate schedule of product administration [Unknown]
  - Weight increased [Unknown]

NARRATIVE: CASE EVENT DATE: 20210204
